FAERS Safety Report 13773767 (Version 1)
Quarter: 2017Q3

REPORT INFORMATION
  Report Type: Spontaneous
  Country: US (occurrence: US)
  Receive Date: 20170720
  Receipt Date: 20170720
  Transmission Date: 20171127
  Serious: Yes (Hospitalization)
  Sender: FDA-Public Use
  Company Number: None

PATIENT
  Age: 44 Year
  Sex: Male
  Weight: 65 kg

DRUGS (1)
  1. CLINDAMYCIN. [Suspect]
     Active Substance: CLINDAMYCIN
     Indication: DERMATITIS
     Route: 048
     Dates: start: 20170627, end: 20170705

REACTIONS (3)
  - White blood cell count increased [None]
  - Rash [None]
  - Tachycardia [None]

NARRATIVE: CASE EVENT DATE: 20170703
